FAERS Safety Report 25531379 (Version 1)
Quarter: 2025Q3

REPORT INFORMATION
  Report Type: Spontaneous
  Country: US (occurrence: US)
  Receive Date: 20250708
  Receipt Date: 20250708
  Transmission Date: 20251020
  Serious: No
  Sender: NOVARTIS
  Company Number: US-002147023-NVSC2025US105903

PATIENT
  Age: 53 Year
  Sex: Female
  Weight: 150 kg

DRUGS (1)
  1. COSENTYX [Suspect]
     Active Substance: SECUKINUMAB
     Indication: Product used for unknown indication
     Route: 065
     Dates: start: 20250601, end: 20250615

REACTIONS (4)
  - Dizziness [Unknown]
  - Constipation [Unknown]
  - Nausea [Unknown]
  - Dry mouth [Unknown]

NARRATIVE: CASE EVENT DATE: 20250601
